FAERS Safety Report 4284811-1 (Version None)
Quarter: 2004Q1

REPORT INFORMATION
  Report Type: 
  Country: None (occurrence: None)
  Receive Date: 20040203
  Receipt Date: 20040127
  Transmission Date: 20041129
  Serious: Yes (Life-Threatening, Hospitalization)
  Sender: FDA-Public Use
  Company Number: 7281

PATIENT
  Age: 66 Year

DRUGS (9)
  1. METHOTREXATE [Suspect]
     Indication: ARTHRITIS
     Dosage: 12.5 MG WEEKLY
     Dates: end: 20021128
  2. AMIODARONE HCL [Suspect]
     Indication: MYOCARDIAL ISCHAEMIA
     Dosage: 20 MG
     Dates: end: 20021128
  3. ASPIRIN [Suspect]
     Indication: MYOCARDIAL ISCHAEMIA
     Dosage: 1 TABLET (S)
     Route: 048
     Dates: end: 20021128
  4. TRIMETHOPRIM [Suspect]
     Indication: INFECTION PARASITIC
     Dosage: 1 TABLET (S)
     Route: 048
  5. PREDNISOLONE [Concomitant]
  6. CAPTOPRIL [Concomitant]
  7. METFORMIN HCL [Concomitant]
  8. FOLIC ACID [Concomitant]
  9. AMPHOTERICIN B [Concomitant]

REACTIONS (4)
  - MOUTH ULCERATION [None]
  - MUCOSAL INFLAMMATION [None]
  - PANCYTOPENIA [None]
  - PLEURAL EFFUSION [None]
